FAERS Safety Report 18055134 (Version 1)
Quarter: 2020Q3

REPORT INFORMATION
  Report Type: Spontaneous
  Country: BR (occurrence: BR)
  Receive Date: 20200722
  Receipt Date: 20200722
  Transmission Date: 20201103
  Serious: Yes (Other)
  Sender: FDA-Public Use
  Company Number: NVSC2020BR204785

PATIENT
  Sex: Male

DRUGS (1)
  1. NEVANAC UNO [Suspect]
     Active Substance: NEPAFENAC
     Indication: RETINITIS
     Dosage: UNK
     Route: 065

REACTIONS (2)
  - Retinitis [Recovering/Resolving]
  - Disease recurrence [Recovering/Resolving]
